FAERS Safety Report 5469771-X (Version None)
Quarter: 2007Q3

REPORT INFORMATION
  Report Type: 
  Country: None (occurrence: None)
  Receive Date: 20070927
  Receipt Date: 20070430
  Transmission Date: 20080115
  Serious: No
  Sender: FDA-Public Use
  Company Number: US-AMGEN-US204497

PATIENT
  Sex: Male

DRUGS (9)
  1. NEUPOGEN [Suspect]
     Indication: CHEMOTHERAPY
     Route: 058
     Dates: start: 20011001
  2. MEPRON [Concomitant]
  3. VALTREX [Concomitant]
     Route: 065
  4. SPIRIVA [Concomitant]
     Route: 065
  5. PROZAC [Concomitant]
     Route: 065
  6. XANAX [Concomitant]
  7. NASONEX [Concomitant]
     Route: 045
  8. TRAVATAN [Concomitant]
     Route: 065
  9. PREVACID [Concomitant]
     Route: 065

REACTIONS (2)
  - EYE SWELLING [None]
  - OCULAR HYPERAEMIA [None]
